FAERS Safety Report 19980012 (Version 1)
Quarter: 2021Q4

REPORT INFORMATION
  Report Type: Spontaneous
  Country: IT (occurrence: IT)
  Receive Date: 20211021
  Receipt Date: 20211021
  Transmission Date: 20220304
  Serious: Yes (Death, Hospitalization)
  Sender: FDA-Public Use
  Company Number: IT-MYLANLABS-2021M1073982

PATIENT
  Age: 23 Year
  Sex: Female

DRUGS (6)
  1. VALGANCICLOVIR [Suspect]
     Active Substance: VALGANCICLOVIR
     Indication: Cytomegalovirus infection
     Dosage: 900 MILLIGRAM, BID
     Route: 065
     Dates: start: 2018
  2. GANCICLOVIR [Suspect]
     Active Substance: GANCICLOVIR
     Indication: Cytomegalovirus infection
     Dosage: 250 MILLIGRAM, BID
     Route: 042
     Dates: start: 2019
  3. GANCICLOVIR [Suspect]
     Active Substance: GANCICLOVIR
     Dosage: 200 MILLIGRAM, BID
     Route: 042
     Dates: start: 2019
  4. GANCICLOVIR [Suspect]
     Active Substance: GANCICLOVIR
     Dosage: 230 MILLIGRAM, BID
     Route: 042
     Dates: start: 2019
  5. TACROLIMUS [Concomitant]
     Active Substance: TACROLIMUS
     Indication: Immunosuppressant drug therapy
     Dosage: 0.5 MILLIGRAM, QD
     Route: 065
     Dates: start: 2018
  6. TACROLIMUS [Concomitant]
     Active Substance: TACROLIMUS
     Dosage: UNK, DOSE DECREASED
     Route: 065
     Dates: start: 2018

REACTIONS (1)
  - Drug ineffective [Fatal]

NARRATIVE: CASE EVENT DATE: 20190101
